FAERS Safety Report 9657894 (Version 1)
Quarter: 2013Q4

REPORT INFORMATION
  Report Type: Spontaneous
  Country: US (occurrence: US)
  Receive Date: 20131030
  Receipt Date: 20131030
  Transmission Date: 20140711
  Serious: Yes (Hospitalization)
  Sender: FDA-Public Use
  Company Number: US-B.I. PHARMACEUTICALS,INC./RIDGEFIELD-2013-BI-34157BP

PATIENT
  Age: 84 Year
  Sex: Female

DRUGS (4)
  1. SPIRIVA [Suspect]
     Indication: CHRONIC OBSTRUCTIVE PULMONARY DISEASE
     Dosage: 18 MCG
     Route: 055
     Dates: start: 2011
  2. DIGOXIN [Concomitant]
     Route: 048
  3. ADVAIR [Concomitant]
     Route: 055
  4. LASIX [Concomitant]
     Route: 048

REACTIONS (2)
  - Fall [Not Recovered/Not Resolved]
  - Laceration [Not Recovered/Not Resolved]
